FAERS Safety Report 10016915 (Version 2)
Quarter: 2014Q2

REPORT INFORMATION
  Report Type: Spontaneous
  Country: US (occurrence: US)
  Receive Date: 20140318
  Receipt Date: 20140602
  Transmission Date: 20141212
  Serious: Yes (Hospitalization)
  Sender: FDA-Public Use
  Company Number: US-BIOGENIDEC-2014BI021460

PATIENT
  Age: 41 Year
  Sex: Female

DRUGS (7)
  1. TYSABRI [Suspect]
     Indication: MULTIPLE SCLEROSIS
     Route: 042
     Dates: start: 20090416, end: 20140127
  2. CIPROFLOXACIN [Concomitant]
  3. FOLIC ACID, VIT B6, VIT B12 [Concomitant]
     Route: 048
  4. IBUPROFEN [Concomitant]
     Route: 048
  5. LEVETIRACETAM [Concomitant]
  6. OXCARBAZEPINE [Concomitant]
     Route: 048
  7. OMEPRAZOLE [Concomitant]
     Route: 048

REACTIONS (2)
  - Convulsion [Recovered/Resolved]
  - Multiple sclerosis [Recovered/Resolved]
